FAERS Safety Report 8379951-1 (Version None)
Quarter: 2012Q1

REPORT INFORMATION
  Report Type: 
  Country: None (occurrence: None)
  Receive Date: 20120323
  Receipt Date: 20110525
  Transmission Date: 20120608
  Serious: Yes (Life-Threatening, Other)
  Sender: FDA-Public Use
  Company Number: 163-21880-11030959

PATIENT
  Age: 67 Year
  Sex: Female
  Weight: 58.9676 kg

DRUGS (7)
  1. REVLIMID [Suspect]
     Indication: MULTIPLE MYELOMA
     Dosage: 10 MG, QD X21 DAYS, PO, 15 MG, DAILY X21 DAYS, PO
     Route: 048
     Dates: start: 20110402
  2. REVLIMID [Suspect]
     Indication: MULTIPLE MYELOMA
     Dosage: 10 MG, QD X21 DAYS, PO, 15 MG, DAILY X21 DAYS, PO
     Route: 048
     Dates: start: 20110301
  3. MORPHINE SULFATE [Concomitant]
  4. LEVOTHYROXINE SODIUM [Concomitant]
  5. STOOL SOFTENER (DOCUSATE SODIUM) [Concomitant]
  6. ATENOLOL [Concomitant]
  7. WARFARIN SODIUM [Concomitant]

REACTIONS (1)
  - THROMBOSIS [None]
